FAERS Safety Report 16513652 (Version 1)
Quarter: 2019Q3

REPORT INFORMATION
  Report Type: Other
  Country: US (occurrence: US)
  Receive Date: 20190701
  Receipt Date: 20190701
  Transmission Date: 20191004
  Serious: No
  Sender: FDA-Public Use
  Company Number: US-TRIS PHARMA, INC.-19US000082

PATIENT

DRUGS (1)
  1. HYDROCODONE + APAP [Suspect]
     Active Substance: ACETAMINOPHEN\HYDROCODONE BITARTRATE
     Indication: PAIN
     Route: 065

REACTIONS (4)
  - Joint swelling [Unknown]
  - Drug ineffective [Unknown]
  - Influenza like illness [Unknown]
  - Lethargy [Unknown]
